FAERS Safety Report 10223436 (Version 2)
Quarter: 2014Q2

REPORT INFORMATION
  Report Type: Spontaneous
  Country: US (occurrence: US)
  Receive Date: 20140609
  Receipt Date: 20140609
  Transmission Date: 20141212
  Serious: No
  Sender: FDA-Public Use
  Company Number: US-DRREDDYS-USA/USA/13/0034562

PATIENT
  Age: 60 Year
  Sex: Female
  Weight: 90.71 kg

DRUGS (3)
  1. FEXOFENADINE HCL  OTC [Suspect]
     Indication: HYPERSENSITIVITY
     Route: 048
     Dates: start: 20130910
  2. FEXOFENADINE HCL  OTC [Suspect]
     Route: 048
  3. ADVIL [Concomitant]
     Indication: PRODUCT USED FOR UNKNOWN INDICATION
     Route: 065

REACTIONS (2)
  - Extra dose administered [Unknown]
  - No adverse event [Unknown]
